FAERS Safety Report 19643884 (Version 2)
Quarter: 2021Q3

REPORT INFORMATION
  Report Type: Spontaneous
  Country: GB (occurrence: GB)
  Receive Date: 20210730
  Receipt Date: 20210827
  Transmission Date: 20211014
  Serious: Yes (Other)
  Sender: FDA-Public Use
  Company Number: GB-AMERICAN REGENT INC-2021001963

PATIENT
  Age: 75 Year
  Sex: Male
  Weight: 180 kg

DRUGS (4)
  1. LEVOTHYROXINE SODIUM. [Concomitant]
     Active Substance: LEVOTHYROXINE SODIUM
     Indication: PRODUCT USED FOR UNKNOWN INDICATION
     Dosage: UNK
     Route: 065
  2. FERROUS FUMARATE [Concomitant]
     Active Substance: FERROUS FUMARATE
     Indication: PRODUCT USED FOR UNKNOWN INDICATION
     Dosage: UNK
     Route: 065
  3. AMLODIPINE BESILATE [Concomitant]
     Active Substance: AMLODIPINE BESYLATE
     Indication: PRODUCT USED FOR UNKNOWN INDICATION
     Dosage: UNK
     Route: 065
  4. FERINJECT [Suspect]
     Active Substance: FERRIC CARBOXYMALTOSE
     Indication: ANAEMIA
     Dosage: 50 ML
     Dates: start: 20210705, end: 20210705

REACTIONS (4)
  - Influenza [Recovered/Resolved]
  - Asthenia [Recovered/Resolved]
  - Paraesthesia [Recovered/Resolved]
  - Dizziness [Recovered/Resolved]

NARRATIVE: CASE EVENT DATE: 202107
